FAERS Safety Report 13199980 (Version 3)
Quarter: 2017Q1

REPORT INFORMATION
  Report Type: Report from Study
  Country: US (occurrence: US)
  Receive Date: 20170208
  Receipt Date: 20170309
  Transmission Date: 20170428
  Serious: Yes (Other)
  Sender: FDA-Public Use
  Company Number: US-SA-2015SA069139

PATIENT
  Age: 41 Year
  Sex: Female

DRUGS (2)
  1. LEMTRADA [Suspect]
     Active Substance: ALEMTUZUMAB
     Indication: MULTIPLE SCLEROSIS
     Dosage: 12 MG/DOSE X 5
     Route: 041
     Dates: start: 20150427, end: 20150501
  2. LEMTRADA [Suspect]
     Active Substance: ALEMTUZUMAB
     Indication: MULTIPLE SCLEROSIS
     Route: 041
     Dates: start: 20160711, end: 20160713

REACTIONS (25)
  - Malaise [Unknown]
  - Diarrhoea [Unknown]
  - Back pain [Unknown]
  - Fall [Recovered/Resolved]
  - Cystitis [Recovering/Resolving]
  - Constipation [Recovered/Resolved]
  - Vomiting [Unknown]
  - Urine odour abnormal [Not Recovered/Not Resolved]
  - Urine abnormality [Not Recovered/Not Resolved]
  - Memory impairment [Unknown]
  - Autoimmune disorder [Not Recovered/Not Resolved]
  - Blood thyroid stimulating hormone decreased [Not Recovered/Not Resolved]
  - Muscle spasticity [Not Recovered/Not Resolved]
  - Gait disturbance [Not Recovered/Not Resolved]
  - Mobility decreased [Not Recovered/Not Resolved]
  - Muscle spasms [Recovering/Resolving]
  - Drug ineffective [Unknown]
  - Pain in extremity [Unknown]
  - Urinary tract infection [Not Recovered/Not Resolved]
  - Basedow^s disease [Not Recovered/Not Resolved]
  - Pain [Unknown]
  - Nasopharyngitis [Not Recovered/Not Resolved]
  - Condition aggravated [Not Recovered/Not Resolved]
  - Musculoskeletal stiffness [Not Recovered/Not Resolved]
  - Anal incontinence [Not Recovered/Not Resolved]

NARRATIVE: CASE EVENT DATE: 2015
